FAERS Safety Report 24352845 (Version 1)
Quarter: 2024Q3

REPORT INFORMATION
  Report Type: Report from Study
  Country: US (occurrence: US)
  Receive Date: 20240923
  Receipt Date: 20240923
  Transmission Date: 20241017
  Serious: No
  Sender: ROCHE
  Company Number: US-ROCHE-3467753

PATIENT
  Age: 43 Year
  Sex: Female

DRUGS (11)
  1. HERCEPTIN [Suspect]
     Active Substance: TRASTUZUMAB
     Indication: Breast cancer female
     Dosage: DATE OF SERVICE: 01/DEC/2023
     Route: 041
  2. HERCEPTIN [Suspect]
     Active Substance: TRASTUZUMAB
     Indication: Oestrogen receptor assay positive
     Dosage: DATE OF SERVICE: 22/DEC/2023, 12/JAN/2024
     Route: 041
  3. PERJETA [Suspect]
     Active Substance: PERTUZUMAB
     Indication: Breast cancer female
     Dosage: DATE OF SERVICE: 01/DEC/2023
     Route: 042
  4. PERJETA [Suspect]
     Active Substance: PERTUZUMAB
     Indication: Oestrogen receptor assay positive
     Dosage: DATE OF SERVICE: 22/DEC/2023, 12/JAN/2024
     Route: 042
  5. AMLODIPINE [Concomitant]
     Active Substance: AMLODIPINE BESYLATE
     Dosage: 10 MG
  6. CHOLECALCIFEROL [Concomitant]
     Active Substance: CHOLECALCIFEROL
     Dosage: 50 MCG CAPSULE
  7. DEXAMETHASONE [Concomitant]
     Active Substance: DEXAMETHASONE
  8. LIDOCAINE [Concomitant]
     Active Substance: LIDOCAINE
     Dosage: 2.5 - 2.5 % CREAM
  9. LOPERAMIDE [Concomitant]
     Active Substance: LOPERAMIDE
  10. PROCHLORPERAZINE [Concomitant]
     Active Substance: PROCHLORPERAZINE
     Dosage: 10 MG TABLET
  11. ATIVAN [Concomitant]
     Active Substance: LORAZEPAM
     Dosage: 0.5 MG TAB

REACTIONS (7)
  - Off label use [Unknown]
  - Gestational hypertension [Unknown]
  - Maternal pre-pregnancy obesity [Unknown]
  - Glucose tolerance impaired in pregnancy [Unknown]
  - Umbilical hernia [Unknown]
  - Maternal exposure timing unspecified [Unknown]
  - Gestational diabetes [Unknown]
